FAERS Safety Report 10097290 (Version 1)
Quarter: 2014Q2

REPORT INFORMATION
  Report Type: Spontaneous
  Country: JP (occurrence: JP)
  Receive Date: 20140422
  Receipt Date: 20140422
  Transmission Date: 20141212
  Serious: Yes (Disabling, Other)
  Sender: FDA-Public Use
  Company Number: JP-009507513-1404JPN010925

PATIENT
  Age: 73 Year
  Sex: Female

DRUGS (3)
  1. PEGINTRON [Suspect]
     Dosage: 60 MCG/KG, ONCE
     Route: 058
     Dates: start: 201401, end: 201403
  2. REBETOL [Suspect]
     Dosage: 400 MG, UNK
     Route: 048
     Dates: start: 201401, end: 201403
  3. SIMEPREVIR [Concomitant]
     Dosage: 100 MG, UNK
     Route: 048
     Dates: start: 201401, end: 201403

REACTIONS (3)
  - Pyelonephritis [Recovered/Resolved]
  - Altered state of consciousness [Recovered/Resolved]
  - Sepsis [Recovered/Resolved]
